FAERS Safety Report 5486626-5 (Version None)
Quarter: 2007Q3

REPORT INFORMATION
  Report Type: 
  Country: None (occurrence: None)
  Receive Date: 20070925
  Receipt Date: 20070712
  Transmission Date: 20080115
  Serious: No
  Sender: FDA-Public Use
  Company Number: 2007US000434

PATIENT
  Age: 81 Year
  Sex: Male

DRUGS (5)
  1. VESICARE [Suspect]
     Indication: INCONTINENCE
     Dosage: 5 MG,UID/QD;ORAL
     Route: 048
     Dates: start: 20070214, end: 20070404
  2. SIMVASTATIN [Concomitant]
  3. DIOCARPINE (PILOCARPINE) [Concomitant]
  4. TRAVOPROST (TRAVOPROST) [Concomitant]
  5. OMEPRAZOLE [Concomitant]

REACTIONS (1)
  - STOMACH DISCOMFORT [None]
